FAERS Safety Report 15081423 (Version 1)
Quarter: 2018Q2

REPORT INFORMATION
  Report Type: Spontaneous
  Country: US (occurrence: US)
  Receive Date: 20180607
  Receipt Date: 20180607
  Transmission Date: 20180711
  Serious: No
  Sender: FDA-Public Use
  Company Number: None

PATIENT
  Age: 55 Year
  Sex: Male
  Weight: 110 kg

DRUGS (1)
  1. DAUNORUBICIN [Suspect]
     Active Substance: DAUNORUBICIN
     Dates: end: 20180530

REACTIONS (4)
  - Cellulitis [None]
  - Rash erythematous [None]
  - Necrotising fasciitis [None]
  - Pain of skin [None]

NARRATIVE: CASE EVENT DATE: 20180603
